FAERS Safety Report 26123338 (Version 1)
Quarter: 2025Q4

REPORT INFORMATION
  Report Type: Spontaneous
  Country: CN (occurrence: CN)
  Receive Date: 20251204
  Receipt Date: 20251204
  Transmission Date: 20260117
  Serious: Yes (Hospitalization)
  Sender: BEIGENE
  Company Number: CN-BEONEMEDICINES-BGN-2025-021289

PATIENT
  Age: 61 Year
  Sex: Male
  Weight: 59 kg

DRUGS (12)
  1. TISLELIZUMAB [Suspect]
     Active Substance: TISLELIZUMAB
     Indication: Squamous cell carcinoma of lung
     Dosage: 200 MILLIGRAM, Q3WK, D1
     Dates: start: 20251011
  2. TISLELIZUMAB [Suspect]
     Active Substance: TISLELIZUMAB
     Indication: Metastases to lymph nodes
     Dosage: 200 MILLIGRAM, Q3WK, D1
     Dates: start: 20251011
  3. TISLELIZUMAB [Suspect]
     Active Substance: TISLELIZUMAB
     Indication: Metastases to central nervous system
  4. TISLELIZUMAB [Suspect]
     Active Substance: TISLELIZUMAB
     Indication: Metastases to bone
  5. PACLITAXEL [Concomitant]
     Active Substance: PACLITAXEL
     Indication: Squamous cell carcinoma of lung
     Dosage: 360 MILLIGRAM, Q3WK, D1
     Route: 041
     Dates: start: 20251011
  6. PACLITAXEL [Concomitant]
     Active Substance: PACLITAXEL
     Indication: Metastases to lymph nodes
     Dosage: 360 MILLIGRAM, Q3WK, D1
     Dates: start: 20251011
  7. PACLITAXEL [Concomitant]
     Active Substance: PACLITAXEL
     Indication: Metastases to central nervous system
  8. PACLITAXEL [Concomitant]
     Active Substance: PACLITAXEL
     Indication: Metastases to bone
  9. CISPLATIN [Concomitant]
     Active Substance: CISPLATIN
     Indication: Squamous cell carcinoma of lung
     Dosage: 40 MILLIGRAM, Q3WK, D1
     Dates: start: 20251011, end: 20251011
  10. CISPLATIN [Concomitant]
     Active Substance: CISPLATIN
     Indication: Metastases to lymph nodes
     Dosage: 40 MILLIGRAM, Q3WK, D1
     Route: 041
     Dates: start: 20251011, end: 20251011
  11. CISPLATIN [Concomitant]
     Active Substance: CISPLATIN
     Indication: Metastases to central nervous system
     Dosage: 30 MILLIGRAM, Q3WK, D2-3
     Dates: start: 20251012
  12. CISPLATIN [Concomitant]
     Active Substance: CISPLATIN
     Indication: Metastases to bone
     Dosage: 30 MILLIGRAM, Q3WK, D2-3
     Route: 041
     Dates: start: 20251012

REACTIONS (2)
  - Erythema multiforme [Recovering/Resolving]
  - Stevens-Johnson syndrome [Recovering/Resolving]

NARRATIVE: CASE EVENT DATE: 20251031
